FAERS Safety Report 5793674-4 (Version None)
Quarter: 2008Q2

REPORT INFORMATION
  Report Type: 
  Country: None (occurrence: None)
  Receive Date: 20080627
  Receipt Date: 20080620
  Transmission Date: 20081010
  Serious: No
  Sender: FDA-Public Use
  Company Number: US-BAXTER-2008BH006736

PATIENT
  Age: 35 Year
  Sex: Female
  Weight: 81 kg

DRUGS (2)
  1. HEPARIN SODIUM INJECTION [Suspect]
     Indication: CYSTITIS INTERSTITIAL
     Dosage: DOSE UNIT:CUBIC CENTIMETER
     Route: 058
     Dates: start: 20080303, end: 20080401
  2. ELMIRON [Concomitant]
     Indication: CYSTITIS INTERSTITIAL
     Dosage: DOSE UNIT:UNKNOWN
     Route: 065

REACTIONS (5)
  - ABDOMINAL DISTENSION [None]
  - ABDOMINAL PAIN UPPER [None]
  - DYSPNOEA [None]
  - FATIGUE [None]
  - INJECTION SITE BRUISING [None]
